FAERS Safety Report 22608637 (Version 2)
Quarter: 2023Q2

REPORT INFORMATION
  Report Type: Spontaneous
  Country: US (occurrence: US)
  Receive Date: 20230616
  Receipt Date: 20230619
  Transmission Date: 20230721
  Serious: No
  Sender: FDA-Public Use
  Company Number: US-002147023-NVSC2023US137266

PATIENT
  Age: 58 Year
  Sex: Female
  Weight: 108.84 kg

DRUGS (4)
  1. COMBIPATCH [Suspect]
     Active Substance: ESTRADIOL\NORETHINDRONE ACETATE
     Indication: Menopausal symptoms
     Dosage: UNK, BIW (0.05/0.14 MG,ON MONDAY AND FRIDAY))
     Route: 062
  2. COMBIPATCH [Suspect]
     Active Substance: ESTRADIOL\NORETHINDRONE ACETATE
     Dosage: UNK, BIW(0.05/0.14 MG,ON MONDAY AND FRIDAY)
     Route: 062
     Dates: start: 202210
  3. COMBIPATCH [Suspect]
     Active Substance: ESTRADIOL\NORETHINDRONE ACETATE
     Dosage: UNK, BIW (0.05/0.14 MG,ON MONDAY AND FRIDAY)
     Route: 062
     Dates: start: 202302
  4. COMBIPATCH [Suspect]
     Active Substance: ESTRADIOL\NORETHINDRONE ACETATE
     Dosage: UNK,BIW (0.05/0.14 MG,ON MONDAY AND FRIDAY)
     Route: 062
     Dates: start: 202304

REACTIONS (3)
  - Product storage error [Not Recovered/Not Resolved]
  - Product administration error [Not Recovered/Not Resolved]
  - Off label use [Not Recovered/Not Resolved]

NARRATIVE: CASE EVENT DATE: 20230201
